FAERS Safety Report 7998990-3 (Version None)
Quarter: 2011Q4

REPORT INFORMATION
  Report Type: 
  Country: None (occurrence: None)
  Receive Date: 20111221
  Receipt Date: 20111208
  Transmission Date: 20120403
  Serious: Yes (Death)
  Sender: FDA-Public Use
  Company Number: US-CELGENEUS-163-21880-11103374

PATIENT
  Sex: Female

DRUGS (8)
  1. ATENOLOL [Concomitant]
     Dosage: 100 MILLIGRAM
     Route: 065
     Dates: start: 20030101
  2. MOBIC [Concomitant]
     Route: 065
     Dates: start: 20060101
  3. VERAPAMIL [Concomitant]
     Route: 065
     Dates: start: 20100101
  4. ZOCOR [Concomitant]
     Route: 065
     Dates: start: 20030101
  5. METFORMIN HCL [Concomitant]
     Indication: DIABETES MELLITUS
     Dosage: 500 MILLIGRAM
     Route: 048
     Dates: start: 20030101
  6. REVLIMID [Suspect]
     Indication: MULTIPLE MYELOMA
     Dosage: 25 MILLIGRAM
     Route: 048
     Dates: start: 20111020, end: 20111024
  7. LISINOPRIL [Concomitant]
     Route: 065
     Dates: start: 20030101
  8. ALLOPURINOL [Concomitant]
     Dosage: 300 MILLIGRAM
     Route: 048
     Dates: start: 20111018, end: 20111024

REACTIONS (1)
  - SEPSIS [None]
